FAERS Safety Report 10044144 (Version 2)
Quarter: 2014Q2

REPORT INFORMATION
  Report Type: Spontaneous
  Country: IN (occurrence: IN)
  Receive Date: 20140328
  Receipt Date: 20140520
  Transmission Date: 20141212
  Serious: Yes (Hospitalization, Other)
  Sender: FDA-Public Use
  Company Number: IN-ELI_LILLY_AND_COMPANY-IN201403007921

PATIENT
  Age: 58 Year
  Sex: Female

DRUGS (2)
  1. OLANZAPINE [Suspect]
     Indication: PSYCHOTIC DISORDER
     Dosage: 10 MG, OTHER
     Route: 065
  2. VALPROATE [Suspect]
     Indication: PSYCHOTIC DISORDER
     Dosage: 500 MG, QD
     Route: 065

REACTIONS (8)
  - Neuroleptic malignant syndrome [Unknown]
  - Hyponatraemia [Unknown]
  - Ammonia increased [Unknown]
  - Vomiting [Unknown]
  - Generalised tonic-clonic seizure [Unknown]
  - Dehydration [Unknown]
  - Agitation [Unknown]
  - Anaemia [Unknown]
